FAERS Safety Report 6785892-3 (Version None)
Quarter: 2010Q2

REPORT INFORMATION
  Report Type: 
  Country: None (occurrence: None)
  Receive Date: 20100622
  Receipt Date: 20100622
  Transmission Date: 20101027
  Serious: Yes (Hospitalization, Disabling)
  Sender: FDA-Public Use
  Company Number: None

PATIENT
  Sex: Female
  Weight: 54.6 kg

DRUGS (12)
  1. AVASTIN [Suspect]
     Indication: OVARIAN CANCER
     Dosage: 600MG EVERY 2 WEEKS IV DRIP  ONE INFUSION
     Route: 041
     Dates: start: 20100604
  2. TOPOTECAN [Suspect]
     Indication: OVARIAN CANCER
     Dosage: 7MG EVERY 2 WEEKS IV DRIP
     Route: 041
     Dates: start: 20100604
  3. TOPOTECAN [Suspect]
     Indication: OVARIAN CANCER
     Dosage: 7MG EVERY 2 WEEKS IV DRIP
     Route: 041
     Dates: start: 20100611
  4. OMEPRAZOLE [Concomitant]
  5. SIMVASTATIN [Concomitant]
  6. MULTI-VITAMIN [Concomitant]
  7. ASPIRIN [Concomitant]
  8. CALCIUM AND VITAMIN D [Concomitant]
  9. FISH OIL [Concomitant]
  10. LORAZEPAM [Concomitant]
  11. OCCUVITE [Concomitant]
  12. PROCHLORPERAZINE [Concomitant]

REACTIONS (1)
  - PERITONITIS [None]
